FAERS Safety Report 9062323 (Version 1)
Quarter: 2013Q1

REPORT INFORMATION
  Report Type: Spontaneous
  Country: US (occurrence: None)
  Receive Date: 20130122
  Receipt Date: 20130122
  Transmission Date: 20140127
  Serious: Yes (Death)
  Sender: FDA-Public Use
  Company Number: 1553126

PATIENT
  Age: 22 Year
  Sex: Male

DRUGS (8)
  1. DIAZEPAM [Suspect]
  2. FENTANYL CITRATE [Suspect]
  3. METOPROLOL [Suspect]
  4. ETHANOL [Suspect]
  5. TRAZODONE [Suspect]
  6. ZOLPIDEM [Suspect]
  7. QUETIAPINE [Suspect]
  8. FLUOXETINE [Suspect]

REACTIONS (3)
  - Drug abuse [None]
  - Poisoning [None]
  - Self-medication [None]
